FAERS Safety Report 21390774 (Version 1)
Quarter: 2022Q3

REPORT INFORMATION
  Report Type: Spontaneous
  Country: US (occurrence: None)
  Receive Date: 20220928
  Receipt Date: 20220928
  Transmission Date: 20221027
  Serious: No
  Sender: FDA-Public Use
  Company Number: None

PATIENT
  Sex: Male
  Weight: 133.8 kg

DRUGS (9)
  1. CARBOPLATIN [Suspect]
     Active Substance: CARBOPLATIN
  2. TAXOL [Concomitant]
     Active Substance: PACLITAXEL
  3. PHENYLEPHRINE [Concomitant]
  4. FENTANYL [Concomitant]
     Active Substance: FENTANYL
  5. HYDROMORPHONE [Concomitant]
  6. LYRICA [Concomitant]
  7. OXYCODONE [Concomitant]
  8. PROPOFOL [Concomitant]
  9. ROCDURONIUM [Concomitant]

REACTIONS (8)
  - Hypotension [None]
  - Hypovolaemic shock [None]
  - Gastrointestinal anastomotic leak [None]
  - Incision site oedema [None]
  - Incision site erythema [None]
  - Bacterial infection [None]
  - Bradycardia [None]
  - Troponin increased [None]

NARRATIVE: CASE EVENT DATE: 20220907
